FAERS Safety Report 23334766 (Version 1)
Quarter: 2023Q4

REPORT INFORMATION
  Report Type: Spontaneous
  Country: US (occurrence: US)
  Receive Date: 20231224
  Receipt Date: 20231224
  Transmission Date: 20240109
  Serious: Yes (Other)
  Sender: FDA-Public Use
  Company Number: US-JNJFOC-20231240415

PATIENT

DRUGS (5)
  1. IMBRUVICA [Suspect]
     Active Substance: IBRUTINIB
     Indication: Haematological malignancy
     Route: 048
  2. IMBRUVICA [Suspect]
     Active Substance: IBRUTINIB
     Indication: Haematological malignancy
     Route: 048
  3. EMAVUSERTIB [Suspect]
     Active Substance: EMAVUSERTIB
     Indication: Haematological malignancy
     Route: 065
  4. EMAVUSERTIB [Suspect]
     Active Substance: EMAVUSERTIB
     Indication: Haematological malignancy
     Route: 065
  5. EMAVUSERTIB [Suspect]
     Active Substance: EMAVUSERTIB
     Indication: Haematological malignancy
     Route: 065

REACTIONS (2)
  - Syncope [Unknown]
  - Stomatitis [Unknown]
